FAERS Safety Report 11540366 (Version 1)
Quarter: 2015Q3

REPORT INFORMATION
  Report Type: Spontaneous
  Country: US (occurrence: US)
  Receive Date: 20150923
  Receipt Date: 20150923
  Transmission Date: 20151125
  Serious: No
  Sender: FDA-Public Use
  Company Number: US-BEH-2014044633

PATIENT
  Sex: Male
  Weight: 74 kg

DRUGS (16)
  1. SODIUM CHLORIDE. [Concomitant]
     Active Substance: SODIUM CHLORIDE
  2. CYMBALTA [Concomitant]
     Active Substance: DULOXETINE HYDROCHLORIDE
  3. TYLENOL [Concomitant]
     Active Substance: ACETAMINOPHEN
  4. NORMAL SALINE [Concomitant]
     Active Substance: SODIUM CHLORIDE
  5. ZANTAC [Concomitant]
     Active Substance: RANITIDINE HYDROCHLORIDE
  6. VICODIN [Concomitant]
     Active Substance: ACETAMINOPHEN\HYDROCODONE BITARTRATE
  7. EPIPEN [Concomitant]
     Active Substance: EPINEPHRINE
  8. METHYLPREDNISOLONE. [Concomitant]
     Active Substance: METHYLPREDNISOLONE
  9. IMURAN [Concomitant]
     Active Substance: AZATHIOPRINE
  10. AMITRIPTYLINE [Concomitant]
     Active Substance: AMITRIPTYLINE
  11. DIPHENHYDRAMINE. [Concomitant]
     Active Substance: DIPHENHYDRAMINE
  12. PRIVIGEN [Suspect]
     Active Substance: HUMAN IMMUNOGLOBULIN G
     Indication: MYASTHENIA GRAVIS
     Route: 042
  13. ALENDRONATE SODIUM. [Concomitant]
     Active Substance: ALENDRONATE SODIUM
  14. PREDNISONE. [Concomitant]
     Active Substance: PREDNISONE
  15. HEPARIN [Concomitant]
     Active Substance: HEPARIN SODIUM
  16. SYNTHROID [Concomitant]
     Active Substance: LEVOTHYROXINE SODIUM

REACTIONS (13)
  - Vision blurred [Unknown]
  - Pain in extremity [Unknown]
  - Asthenia [Unknown]
  - Neuropathy peripheral [Unknown]
  - Lethargy [Unknown]
  - Pain [Unknown]
  - Somnolence [Unknown]
  - Emotional disorder [Unknown]
  - Fatigue [Unknown]
  - Amnesia [Unknown]
  - Device occlusion [Unknown]
  - Diplopia [Unknown]
  - Dysphagia [Unknown]
